FAERS Safety Report 6652258-6 (Version None)
Quarter: 2010Q1

REPORT INFORMATION
  Report Type: 
  Country: None (occurrence: None)
  Receive Date: 20100325
  Receipt Date: 20100322
  Transmission Date: 20100710
  Serious: Yes (Other)
  Sender: FDA-Public Use
  Company Number: CN-JNJCH-2010007028

PATIENT
  Age: 67 Year
  Sex: Female

DRUGS (1)
  1. LISTERINE FRESHBURST [Suspect]
     Indication: DRUG USE FOR UNKNOWN INDICATION
     Dosage: TEXT:UNKNOWN
     Route: 048
     Dates: start: 20100321, end: 20100321

REACTIONS (3)
  - BLOOD BLISTER [None]
  - MOUTH ULCERATION [None]
  - ORAL PAIN [None]
